FAERS Safety Report 5577826-4 (Version None)
Quarter: 2007Q4

REPORT INFORMATION
  Report Type: 
  Country: None (occurrence: None)
  Receive Date: 20071231
  Receipt Date: 20071217
  Transmission Date: 20080405
  Serious: Yes (Hospitalization)
  Sender: FDA-Public Use
  Company Number: CN-GENENTECH-253306

PATIENT
  Sex: Female
  Weight: 61.5 kg

DRUGS (2)
  1. BEVACIZUMAB [Suspect]
     Indication: NON-SMALL CELL LUNG CANCER
     Dosage: 122.5 MG, UNK
     Route: 042
     Dates: start: 20071211
  2. BEVACIZUMAB [Suspect]
     Dosage: 800 MG, UNK
     Route: 042
     Dates: start: 20071211

REACTIONS (1)
  - PYREXIA [None]
